FAERS Safety Report 10610703 (Version 2)
Quarter: 2015Q1

REPORT INFORMATION
  Report Type: Spontaneous
  Country: US (occurrence: US)
  Receive Date: 20141126
  Receipt Date: 20150202
  Transmission Date: 20150720
  Serious: Yes (Hospitalization)
  Sender: FDA-Public Use
  Company Number: US-BAYER-2014-173181

PATIENT
  Age: 33 Year
  Sex: Female
  Weight: 65.76 kg

DRUGS (1)
  1. MIRENA [Suspect]
     Active Substance: LEVONORGESTREL
     Indication: CONTRACEPTION
     Dosage: 20 MCG/24HR, CONT
     Route: 015
     Dates: start: 20051103, end: 20061219

REACTIONS (7)
  - Pain [None]
  - Uterine perforation [None]
  - Anxiety [None]
  - Injury [None]
  - Device difficult to use [None]
  - Device issue [None]
  - Emotional distress [None]

NARRATIVE: CASE EVENT DATE: 2005
